FAERS Safety Report 5776699-4 (Version None)
Quarter: 2008Q2

REPORT INFORMATION
  Report Type: 
  Country: None (occurrence: None)
  Receive Date: 20080618
  Receipt Date: 20080618
  Transmission Date: 20081010
  Serious: Yes (Hospitalization)
  Sender: FDA-Public Use
  Company Number: None

PATIENT
  Age: 25 Year
  Sex: Male
  Weight: 94.8 kg

DRUGS (1)
  1. HEPARIN [Suspect]
     Dates: start: 20080325, end: 20080402

REACTIONS (17)
  - ANAEMIA [None]
  - AZOTAEMIA [None]
  - GASTRITIS [None]
  - GASTROINTESTINAL EROSION [None]
  - GASTROINTESTINAL HAEMORRHAGE [None]
  - HEADACHE [None]
  - HEPARIN-INDUCED THROMBOCYTOPENIA [None]
  - HYPOAESTHESIA FACIAL [None]
  - INFECTION [None]
  - LUPUS ENCEPHALITIS [None]
  - MENINGITIS BACTERIAL [None]
  - MENINGITIS FUNGAL [None]
  - MENINGITIS VIRAL [None]
  - MENTAL STATUS CHANGES [None]
  - PANCREATITIS ACUTE [None]
  - PYREXIA [None]
  - RENAL FAILURE ACUTE [None]
